FAERS Safety Report 9664910 (Version 1)
Quarter: 2013Q4

REPORT INFORMATION
  Report Type: Spontaneous
  Country: US (occurrence: None)
  Receive Date: 20131031
  Receipt Date: 20131031
  Transmission Date: 20140711
  Serious: Yes (Other)
  Sender: FDA-Public Use
  Company Number: AE-SPE-2013-028

PATIENT
  Age: 11 Year
  Sex: Male

DRUGS (1)
  1. MEIACT MS [Suspect]
     Indication: PRODUCT USED FOR UNKNOWN INDICATION
     Route: 048
     Dates: start: 201207

REACTIONS (1)
  - Toxic epidermal necrolysis [None]
